FAERS Safety Report 18386379 (Version 2)
Quarter: 2020Q4

REPORT INFORMATION
  Report Type: Spontaneous
  Country: US (occurrence: US)
  Receive Date: 20201015
  Receipt Date: 20201023
  Transmission Date: 20210114
  Serious: Yes (Hospitalization, Other)
  Sender: FDA-Public Use
  Company Number: US-PFIZER INC-2020396292

PATIENT
  Age: 79 Year
  Sex: Female

DRUGS (1)
  1. VANCOMYCIN HCL [Suspect]
     Active Substance: VANCOMYCIN HYDROCHLORIDE
     Dosage: UNK

REACTIONS (9)
  - Clostridium difficile infection [Unknown]
  - Diarrhoea [Unknown]
  - Infection [Unknown]
  - Decubitus ulcer [Unknown]
  - Pneumonia [Unknown]
  - COVID-19 [Unknown]
  - Therapeutic product effect incomplete [Unknown]
  - Streptococcal infection [Unknown]
  - Urinary tract infection [Unknown]
